FAERS Safety Report 5354844-2 (Version None)
Quarter: 2007Q2

REPORT INFORMATION
  Report Type: 
  Country: None (occurrence: None)
  Receive Date: 20070611
  Receipt Date: 20070525
  Transmission Date: 20071010
  Serious: Yes (Other)
  Sender: FDA-Public Use
  Company Number: 013845

PATIENT
  Age: 12 Year
  Sex: Female
  Weight: 74.8 kg

DRUGS (1)
  1. JOLESSA [Suspect]
     Indication: MENSTRUATION IRREGULAR
     Dosage: 1 TABLET, QD, ORAL
     Route: 048
     Dates: start: 20061201

REACTIONS (9)
  - AGGRESSION [None]
  - ANTINUCLEAR ANTIBODY POSITIVE [None]
  - ARTHRALGIA [None]
  - DECREASED APPETITE [None]
  - HYPERSOMNIA [None]
  - PYREXIA [None]
  - RED BLOOD CELL SEDIMENTATION RATE INCREASED [None]
  - SLUGGISHNESS [None]
  - SYSTEMIC LUPUS ERYTHEMATOSUS [None]
